FAERS Safety Report 24593087 (Version 1)
Quarter: 2024Q4

REPORT INFORMATION
  Report Type: Spontaneous
  Country: US (occurrence: US)
  Receive Date: 20241108
  Receipt Date: 20241108
  Transmission Date: 20250114
  Serious: No
  Sender: MERCK
  Company Number: US-009507513-2410USA010229

PATIENT
  Age: 32 Year
  Sex: Female

DRUGS (2)
  1. TEMODAR [Suspect]
     Active Substance: TEMOZOLOMIDE
     Indication: Malignant oligodendroglioma
     Dosage: UNK
     Route: 048
  2. VALPROIC ACID [Concomitant]
     Active Substance: VALPROIC ACID
     Dosage: UNK

REACTIONS (2)
  - Maternal exposure during pregnancy [Unknown]
  - Product use in unapproved indication [Unknown]
